FAERS Safety Report 9146086 (Version 5)
Quarter: 2021Q2

REPORT INFORMATION
  Report Type: Spontaneous
  Country: US (occurrence: US)
  Receive Date: 20130307
  Receipt Date: 20210601
  Transmission Date: 20210717
  Serious: No
  Sender: FDA-Public Use
  Company Number: US-PFIZER INC-2013077002

PATIENT
  Age: 66 Year
  Sex: Female
  Weight: 75.74 kg

DRUGS (2)
  1. VENLAFAXINE ER [Suspect]
     Active Substance: VENLAFAXINE HYDROCHLORIDE
     Dosage: 150 MG, 1X/DAY  (1 QD EVERY DAY)
  2. VENLAFAXINE ER [Suspect]
     Active Substance: VENLAFAXINE HYDROCHLORIDE
     Indication: DEPRESSION
     Dosage: 75 MG, 1X/DAY
     Dates: start: 201301, end: 20130303

REACTIONS (7)
  - Mental status changes [Unknown]
  - Anxiety [Unknown]
  - Impatience [Unknown]
  - Anger [Unknown]
  - Drug ineffective [Unknown]
  - Blood glucose increased [Unknown]
  - Crying [Unknown]

NARRATIVE: CASE EVENT DATE: 201302
